FAERS Safety Report 5736327-0 (Version None)
Quarter: 2008Q2

REPORT INFORMATION
  Report Type: 
  Country: None (occurrence: None)
  Receive Date: 20080513
  Receipt Date: 20080505
  Transmission Date: 20081010
  Serious: Yes (Hospitalization)
  Sender: FDA-Public Use
  Company Number: US-ELI_LILLY_AND_COMPANY-US200805000728

PATIENT
  Age: 50 Year
  Sex: Female

DRUGS (3)
  1. HUMATROPE [Suspect]
     Dates: start: 20010101
  2. LEVOXYL [Concomitant]
  3. CORTEF [Concomitant]

REACTIONS (2)
  - BLOOD PRESSURE INADEQUATELY CONTROLLED [None]
  - HEADACHE [None]
